FAERS Safety Report 25396412 (Version 2)
Quarter: 2025Q2

REPORT INFORMATION
  Report Type: Spontaneous
  Country: US (occurrence: US)
  Receive Date: 20250604
  Receipt Date: 20250611
  Transmission Date: 20250716
  Serious: No
  Sender: IPSEN BIOPHARMACEUTICALS, INC.
  Company Number: US-IPSEN Group, Research and Development-2025-12442

PATIENT
  Sex: Female
  Weight: 69.39 kg

DRUGS (14)
  1. IQIRVO [Suspect]
     Active Substance: ELAFIBRANOR
     Indication: Product used for unknown indication
     Route: 048
  2. OCALIVA [Suspect]
     Active Substance: OBETICHOLIC ACID
     Indication: Primary biliary cholangitis
     Route: 048
  3. EZETIMIBE [Concomitant]
     Active Substance: EZETIMIBE
  4. ZETIA [Concomitant]
     Active Substance: EZETIMIBE
  5. VITAMIN D3 GUMMY [Concomitant]
  6. MIRALAX [Concomitant]
     Active Substance: POLYETHYLENE GLYCOL 3350
  7. MAGNESIUM [Concomitant]
     Active Substance: MAGNESIUM
  8. PROLIA [Concomitant]
     Active Substance: DENOSUMAB
  9. VITAMIN D3-VITAMIN K2 [Concomitant]
  10. FISH OIL [Concomitant]
     Active Substance: FISH OIL
  11. CALCIUM [Concomitant]
     Active Substance: CALCIUM
  12. ASPIRIN [Concomitant]
     Active Substance: ASPIRIN
  13. VITAMIN D-400 [Concomitant]
  14. URSODIOL [Concomitant]
     Active Substance: URSODIOL

REACTIONS (1)
  - Hypersensitivity [Unknown]
